FAERS Safety Report 8967762 (Version 1)
Quarter: 2012Q4

REPORT INFORMATION
  Report Type: Spontaneous
  Country: US (occurrence: None)
  Receive Date: 20121213
  Receipt Date: 20121213
  Transmission Date: 20130627
  Serious: Yes (Hospitalization)
  Sender: FDA-Public Use
  Company Number: None

PATIENT
  Age: 15 Year
  Sex: Male
  Weight: 54.9 kg

DRUGS (3)
  1. ETANERCEPT [Suspect]
     Indication: ARTHRITIS
     Route: 058
  2. METHOTREXATE [Suspect]
     Route: 048
  3. WELLBUTRIN [Concomitant]

REACTIONS (6)
  - Suicide attempt [None]
  - Overdose [None]
  - Treatment noncompliance [None]
  - Frustration [None]
  - Drug abuse [None]
  - Psychiatric evaluation [None]
